FAERS Safety Report 9619002 (Version 2)
Quarter: 2013Q4

REPORT INFORMATION
  Report Type: Spontaneous
  Country: US (occurrence: US)
  Receive Date: 20131014
  Receipt Date: 20131014
  Transmission Date: 20140711
  Serious: No
  Sender: FDA-Public Use
  Company Number: US-BAXTER-2013BAX021387

PATIENT
  Sex: Female

DRUGS (2)
  1. DIANEAL LOW CALCIUM [Suspect]
     Indication: PERITONEAL DIALYSIS
     Route: 033
     Dates: start: 20130501
  2. DIANEAL LOW CALCIUM [Suspect]
     Indication: PERITONEAL DIALYSIS

REACTIONS (7)
  - Cervix disorder [Recovering/Resolving]
  - Intestinal prolapse [Recovering/Resolving]
  - Bladder prolapse [Recovering/Resolving]
  - Bladder prolapse [Recovering/Resolving]
  - Sensation of pressure [Recovering/Resolving]
  - Procedural pain [Unknown]
  - Pain [Unknown]
